FAERS Safety Report 25124370 (Version 1)
Quarter: 2025Q1

REPORT INFORMATION
  Report Type: Spontaneous
  Country: CA (occurrence: CA)
  Receive Date: 20250326
  Receipt Date: 20250326
  Transmission Date: 20250409
  Serious: Yes (Other)
  Sender: NOVARTIS
  Company Number: CA-002147023-NVSC2025CA049841

PATIENT
  Age: 24 Year
  Sex: Female

DRUGS (1)
  1. KESIMPTA [Suspect]
     Active Substance: OFATUMUMAB
     Indication: Multiple sclerosis
     Dosage: 20 MG, QMO
     Route: 058

REACTIONS (3)
  - Urinary tract infection [Recovering/Resolving]
  - Product dose omission issue [Recovering/Resolving]
  - Intentional dose omission [Recovering/Resolving]
